APPROVED DRUG PRODUCT: DARVOCET A500
Active Ingredient: ACETAMINOPHEN; PROPOXYPHENE NAPSYLATE
Strength: 500MG;100MG
Dosage Form/Route: TABLET;ORAL
Application: A076429 | Product #001
Applicant: XANODYNE PHARMACEUTICS INC
Approved: Sep 10, 2003 | RLD: No | RS: No | Type: DISCN